FAERS Safety Report 21044849 (Version 1)
Quarter: 2022Q3

REPORT INFORMATION
  Report Type: Spontaneous
  Country: US (occurrence: US)
  Receive Date: 20220705
  Receipt Date: 20220705
  Transmission Date: 20221027
  Serious: No
  Sender: FDA-Public Use
  Company Number: US-Millicent Holdings Ltd.-MILL20220166

PATIENT
  Age: 72 Year
  Sex: Female

DRUGS (1)
  1. INTRAROSA [Suspect]
     Active Substance: PRASTERONE
     Indication: Vaginal disorder
     Dosage: 6.5 MG ONCE DAILY FOR 28 DAYS
     Route: 067

REACTIONS (1)
  - Off label use [Unknown]
